FAERS Safety Report 5130351-7 (Version None)
Quarter: 2006Q4

REPORT INFORMATION
  Report Type: 
  Country: None (occurrence: None)
  Receive Date: 20061019
  Receipt Date: 20060920
  Transmission Date: 20070319
  Serious: Yes (Hospitalization)
  Sender: FDA-Public Use
  Company Number: IT-BRISTOL-MYERS SQUIBB COMPANY-13515093

PATIENT
  Age: 78 Year
  Sex: Female

DRUGS (4)
  1. TAXOL [Suspect]
     Indication: OVARIAN CANCER
     Dates: start: 20060829, end: 20060829
  2. DEXAMETHASONE TAB [Concomitant]
  3. ZANTAC [Concomitant]
  4. TRIMETON [Concomitant]

REACTIONS (1)
  - RESPIRATORY DISTRESS [None]
